FAERS Safety Report 24388709 (Version 1)
Quarter: 2024Q4

REPORT INFORMATION
  Report Type: Spontaneous
  Country: US (occurrence: None)
  Receive Date: 20241002
  Receipt Date: 20241002
  Transmission Date: 20250114
  Serious: Yes (Hospitalization, Disabling, Other)
  Sender: Public
  Company Number: None

PATIENT
  Age: 32 Year
  Sex: Female
  Weight: 57.15 kg

DRUGS (5)
  1. LAMICTAL [Suspect]
     Active Substance: LAMOTRIGINE
     Indication: Depression
     Dates: start: 20230722, end: 20240916
  2. LAMICTAL XR [Suspect]
     Active Substance: LAMOTRIGINE
  3. VYVANSE [Concomitant]
     Active Substance: LISDEXAMFETAMINE DIMESYLATE
  4. ADDERALL [Concomitant]
     Active Substance: AMPHETAMINE ASPARTATE\AMPHETAMINE SULFATE\DEXTROAMPHETAMINE SACCHARATE\DEXTROAMPHETAMINE SULFATE
  5. CLONIDINE [Concomitant]
     Active Substance: CLONIDINE

REACTIONS (37)
  - Autoimmune disorder [None]
  - Panic attack [None]
  - Obsessive-compulsive disorder [None]
  - Feeling abnormal [None]
  - Night sweats [None]
  - Brain fog [None]
  - Thinking abnormal [None]
  - Aphasia [None]
  - Tremor [None]
  - Raynaud^s phenomenon [None]
  - Migraine [None]
  - Ocular discomfort [None]
  - Diplopia [None]
  - Vision blurred [None]
  - Clumsiness [None]
  - Fall [None]
  - Myalgia [None]
  - Bone pain [None]
  - Arthralgia [None]
  - Crying [None]
  - Musculoskeletal stiffness [None]
  - Chest pain [None]
  - Paranasal sinus discomfort [None]
  - Lymphadenopathy [None]
  - Ear infection [None]
  - Tinnitus [None]
  - Ear discomfort [None]
  - Nonspecific reaction [None]
  - Feeling cold [None]
  - Peripheral swelling [None]
  - Apathy [None]
  - Anhedonia [None]
  - Spinal disorder [None]
  - Headache [None]
  - Aspartate aminotransferase decreased [None]
  - Alanine aminotransferase decreased [None]
  - Anion gap decreased [None]

NARRATIVE: CASE EVENT DATE: 20240901
